FAERS Safety Report 25836875 (Version 1)
Quarter: 2025Q3

REPORT INFORMATION
  Report Type: Spontaneous
  Country: CN (occurrence: CN)
  Receive Date: 20250923
  Receipt Date: 20250923
  Transmission Date: 20251020
  Serious: Yes (Hospitalization)
  Sender: PFIZER
  Company Number: CN-PFIZER INC-PV202500112968

PATIENT
  Age: 18 Year
  Sex: Female
  Weight: 59 kg

DRUGS (1)
  1. METHOTREXATE SODIUM [Suspect]
     Active Substance: METHOTREXATE SODIUM
     Indication: Acute lymphocytic leukaemia
     Dosage: 7 G, 1X/DAY
     Route: 041
     Dates: start: 20250825, end: 20250825

REACTIONS (5)
  - Oral disorder [Recovering/Resolving]
  - Oral mucosal erythema [Recovering/Resolving]
  - Full blood count decreased [Recovering/Resolving]
  - Disease recurrence [Recovering/Resolving]
  - Blood creatinine increased [Recovering/Resolving]

NARRATIVE: CASE EVENT DATE: 20250827
